FAERS Safety Report 9398646 (Version 6)
Quarter: 2013Q4

REPORT INFORMATION
  Report Type: Report from Study
  Country: GB (occurrence: GB)
  Receive Date: 20130712
  Receipt Date: 20131025
  Transmission Date: 20140711
  Serious: Yes (Life-Threatening, Hospitalization, Other)
  Sender: FDA-Public Use
  Company Number: GB-VERTEX PHARMACEUTICALS INC-2013-007918

PATIENT
  Age: 30 Year
  Sex: Female

DRUGS (4)
  1. VX-950 (TELAPREVIR) [Suspect]
     Indication: HEPATITIS C
     Dosage: 1125 MG, BID
     Route: 048
     Dates: start: 20130704, end: 20130926
  2. RIBAVIRIN [Suspect]
     Indication: HEPATITIS C
     Dosage: UNK, BID
     Route: 048
     Dates: start: 20130704
  3. PEG-INTERFERON [Suspect]
     Indication: HEPATITIS C
     Dosage: DOSAGE FORM: INJECTION, WEEKLY
     Route: 058
     Dates: start: 20130704
  4. PARACETAMOL [Suspect]
     Indication: PRODUCT USED FOR UNKNOWN INDICATION
     Dosage: DOSAGE FORM: UNSPECIFIED
     Route: 065
     Dates: start: 201308

REACTIONS (24)
  - Suicidal ideation [Not Recovered/Not Resolved]
  - Suicide attempt [Recovered/Resolved]
  - Abdominal pain [Not Recovered/Not Resolved]
  - Depressed mood [Not Recovered/Not Resolved]
  - Vomiting [Not Recovered/Not Resolved]
  - Rash [Not Recovered/Not Resolved]
  - Insomnia [Not Recovered/Not Resolved]
  - Lethargy [Not Recovered/Not Resolved]
  - Contusion [Not Recovered/Not Resolved]
  - Migraine [Not Recovered/Not Resolved]
  - Vaginal haemorrhage [Unknown]
  - Anger [Unknown]
  - Skin discolouration [Unknown]
  - Weight decreased [Not Recovered/Not Resolved]
  - Injection site reaction [Unknown]
  - Headache [Not Recovered/Not Resolved]
  - Paraesthesia [Unknown]
  - Back pain [Not Recovered/Not Resolved]
  - Panic reaction [Unknown]
  - Anal pruritus [Recovered/Resolved]
  - Diarrhoea [Recovered/Resolved]
  - Haemorrhoidal haemorrhage [Recovered/Resolved]
  - Nausea [Unknown]
  - Proctalgia [Not Recovered/Not Resolved]
